FAERS Safety Report 8789882 (Version 2)
Quarter: 2012Q4

REPORT INFORMATION
  Report Type: 
  Country: JP (occurrence: JP)
  Receive Date: 20120917
  Receipt Date: 20121113
  Transmission Date: 20130627
  Serious: Yes (Hospitalization, Other)
  Sender: FDA-Public Use
  Company Number: JP-PFIZER INC-2012225891

PATIENT
  Age: 35 Year
  Sex: Female
  Weight: 165 kg

DRUGS (2)
  1. SOLU-CORTEF [Suspect]
     Dosage: UNK
     Dates: start: 200807
  2. PRIDOL [Suspect]
     Dosage: 80 mg
     Dates: start: 200610, end: 200805

REACTIONS (1)
  - Osteonecrosis [Recovering/Resolving]
